FAERS Safety Report 17073287 (Version 1)
Quarter: 2019Q4

REPORT INFORMATION
  Report Type: Spontaneous
  Country: US (occurrence: US)
  Receive Date: 20191125
  Receipt Date: 20191125
  Transmission Date: 20200122
  Serious: Yes (Life-Threatening, Hospitalization, Other)
  Sender: FDA-Public Use
  Company Number: US-AUROBINDO-AUR-APL-2019-073225

PATIENT
  Age: 44 Year
  Sex: Female

DRUGS (1)
  1. DIVALPROEX [Suspect]
     Active Substance: DIVALPROEX SODIUM
     Indication: MENTAL DISORDER
     Dosage: CHRONIC THERAPY
     Route: 065

REACTIONS (3)
  - Acute kidney injury [Unknown]
  - Drug-induced liver injury [Unknown]
  - Rhabdomyolysis [Unknown]
